FAERS Safety Report 7419051-8 (Version None)
Quarter: 2011Q2

REPORT INFORMATION
  Report Type: 
  Country: None (occurrence: None)
  Receive Date: 20110415
  Receipt Date: 20110405
  Transmission Date: 20111010
  Serious: Yes (Other)
  Sender: FDA-Public Use
  Company Number: PHHY2011VE28468

PATIENT
  Sex: Male

DRUGS (3)
  1. GLEEVEC [Suspect]
     Indication: CHRONIC MYELOID LEUKAEMIA
     Dosage: 400 MG, UNK
  2. GLEEVEC [Suspect]
     Dosage: 600 MG, UNK
  3. GLEEVEC [Suspect]
     Dosage: 400 MG, UNK

REACTIONS (2)
  - MYELOFIBROSIS [None]
  - CHRONIC MYELOID LEUKAEMIA [None]
